FAERS Safety Report 10676713 (Version 1)
Quarter: 2014Q4

REPORT INFORMATION
  Report Type: Spontaneous
  Country: None (occurrence: None)
  Receive Date: 20141223
  Receipt Date: 20141223
  Transmission Date: 20150529
  Serious: No
  Sender: FDA-Public Use
  Company Number: None

PATIENT

DRUGS (1)
  1. HALLBRITE BHB [Suspect]
     Active Substance: BUTYLOCTYL SALICYLATE

REACTIONS (1)
  - Product label issue [None]
